FAERS Safety Report 10419419 (Version 1)
Quarter: 2014Q2

REPORT INFORMATION
  Report Type: Spontaneous
  Country: US (occurrence: None)
  Receive Date: 20140627
  Receipt Date: 20140627
  Transmission Date: 20141212
  Serious: Yes (Hospitalization)
  Sender: FDA-Public Use
  Company Number: PHEH2013US025674

PATIENT
  Age: 72 Year
  Sex: Female

DRUGS (2)
  1. DIOVAN HCT (VALSARTAN, HYDROCHLOROTHIAZIDE) UNKNOWN [Suspect]
  2. LEVOTHYROXINE [Concomitant]

REACTIONS (2)
  - Blood pressure decreased [None]
  - Wrong technique in drug usage process [None]
